FAERS Safety Report 6301578-3 (Version None)
Quarter: 2009Q3

REPORT INFORMATION
  Report Type: 
  Country: None (occurrence: None)
  Receive Date: 20090807
  Receipt Date: 20090730
  Transmission Date: 20100115
  Serious: Yes (Hospitalization)
  Sender: FDA-Public Use
  Company Number: RU-ABBOTT-09P-251-0580649-00

PATIENT
  Sex: Male
  Weight: 97 kg

DRUGS (6)
  1. RITONAVIR [Suspect]
     Indication: HIV INFECTION
     Route: 048
     Dates: start: 20060425, end: 20090622
  2. RITONAVIR [Suspect]
     Dates: start: 20090625
  3. TMC114 [Concomitant]
     Indication: HIV INFECTION
     Route: 048
     Dates: start: 20060425, end: 20090622
  4. TMC114 [Concomitant]
     Route: 048
     Dates: start: 20090625
  5. TRUVADA [Concomitant]
     Indication: HIV INFECTION
     Route: 048
     Dates: start: 20060425, end: 20090622
  6. TRUVADA [Concomitant]
     Dates: start: 20090625

REACTIONS (6)
  - ARTERIOSCLEROSIS [None]
  - CARDIAC VALVE REPLACEMENT COMPLICATION [None]
  - LERICHE SYNDROME [None]
  - THROMBOSIS IN DEVICE [None]
  - VASCULAR PROCEDURE COMPLICATION [None]
  - VASCULAR PSEUDOANEURYSM [None]
